FAERS Safety Report 6836724-6 (Version None)
Quarter: 2010Q3

REPORT INFORMATION
  Report Type: 
  Country: None (occurrence: None)
  Receive Date: 20100713
  Receipt Date: 20100701
  Transmission Date: 20110219
  Serious: Yes (Other)
  Sender: FDA-Public Use
  Company Number: US-ELI_LILLY_AND_COMPANY-US201007001056

PATIENT
  Sex: Male

DRUGS (1)
  1. TADALAFIL [Suspect]
     Indication: PULMONARY HYPERTENSION

REACTIONS (2)
  - ARTERIAL OCCLUSIVE DISEASE [None]
  - BLINDNESS [None]
